FAERS Safety Report 6550226-6 (Version None)
Quarter: 2010Q1

REPORT INFORMATION
  Report Type: 
  Country: None (occurrence: None)
  Receive Date: 20100125
  Receipt Date: 20100113
  Transmission Date: 20100710
  Serious: Yes (Hospitalization, Disabling)
  Sender: FDA-Public Use
  Company Number: US-ELI_LILLY_AND_COMPANY-US200911003831

PATIENT
  Sex: Male

DRUGS (9)
  1. FORTEO [Suspect]
     Indication: OSTEOPOROSIS
     Dosage: 20 UG, DAILY (1/D)
  2. FORTEO [Suspect]
     Dosage: 20 UG, DAILY (1/D)
  3. PROPOXYPHENE-N [Concomitant]
     Dosage: 100 MG, UNK
  4. RANITIDINE [Concomitant]
     Dosage: 300 MG, UNK
  5. DILTIAZEM [Concomitant]
     Dosage: 10 MG, UNK
  6. FERROUS SULFATE TAB [Concomitant]
     Dosage: 325 MG, UNK
  7. LOVASTATIN [Concomitant]
     Dosage: 40 MG, UNK
  8. AMITRIPTYLINE HCL [Concomitant]
     Dosage: 100 MG, UNK
  9. NEXIUM [Concomitant]
     Dosage: 40 MG, UNK

REACTIONS (2)
  - ARTHRALGIA [None]
  - BLOOD COUNT ABNORMAL [None]
